FAERS Safety Report 9643001 (Version 1)
Quarter: 2013Q4

REPORT INFORMATION
  Report Type: Spontaneous
  Country: US (occurrence: US)
  Receive Date: 20131024
  Receipt Date: 20131024
  Transmission Date: 20140711
  Serious: Yes (Other)
  Sender: FDA-Public Use
  Company Number: US-TEVA-439406USA

PATIENT
  Age: 30 Year
  Sex: Female

DRUGS (1)
  1. PROAIR HFA [Suspect]
     Dosage: 1-2 PUFFS EVERY 4-6 HOURS
     Dates: start: 20131017

REACTIONS (7)
  - Eye swelling [Unknown]
  - Lip swelling [Unknown]
  - Swelling face [Unknown]
  - Ear swelling [Unknown]
  - Local swelling [Unknown]
  - Burning sensation [Unknown]
  - Urticaria [Unknown]
